FAERS Safety Report 5618206-2 (Version None)
Quarter: 2008Q1

REPORT INFORMATION
  Report Type: 
  Country: None (occurrence: None)
  Receive Date: 20080207
  Receipt Date: 20071211
  Transmission Date: 20080703
  Serious: No
  Sender: FDA-Public Use
  Company Number: A0698357A

PATIENT
  Sex: Male

DRUGS (2)
  1. PAXIL [Suspect]
     Dosage: 60MG PER DAY
     Route: 048
  2. ATIVAN [Concomitant]

REACTIONS (2)
  - INCREASED APPETITE [None]
  - SEXUAL DYSFUNCTION [None]
